FAERS Safety Report 24326221 (Version 1)
Quarter: 2024Q3

REPORT INFORMATION
  Report Type: Spontaneous
  Country: US (occurrence: US)
  Receive Date: 20240917
  Receipt Date: 20240917
  Transmission Date: 20241017
  Serious: No
  Sender: APOTEX
  Company Number: US-APOTEX-2024AP010438

PATIENT
  Age: 45 Year
  Sex: Male

DRUGS (2)
  1. CYCLOSPORINE [Suspect]
     Active Substance: CYCLOSPORINE
     Indication: Scleritis
     Dosage: 3 MILLIGRAM/KILOGRAM, BID
     Route: 065
  2. CYCLOSPORINE [Suspect]
     Active Substance: CYCLOSPORINE
     Indication: Iridocyclitis
     Dosage: 1 MILLIGRAM/KILOGRAM, BID
     Route: 065

REACTIONS (2)
  - Blood creatinine increased [Unknown]
  - Drug effect less than expected [Unknown]
